FAERS Safety Report 24575814 (Version 1)
Quarter: 2024Q4

REPORT INFORMATION
  Report Type: Spontaneous
  Country: US (occurrence: None)
  Receive Date: 20241102
  Receipt Date: 20241102
  Transmission Date: 20250114
  Serious: Yes (Hospitalization)
  Sender: Public
  Company Number: None

PATIENT
  Age: 79 Year
  Sex: Female
  Weight: 55.79 kg

DRUGS (3)
  1. DARATUMUMAB [Suspect]
     Active Substance: DARATUMUMAB
     Dates: end: 20241015
  2. DEXAMETHASONE [Suspect]
     Active Substance: DEXAMETHASONE
     Dates: end: 20241029
  3. LENALIDOMIDE [Suspect]
     Active Substance: LENALIDOMIDE
     Dates: end: 20241031

REACTIONS (6)
  - Dyspnoea [None]
  - Cough [None]
  - Rhinorrhoea [None]
  - Sepsis [None]
  - Urinary tract infection [None]
  - Human rhinovirus test positive [None]

NARRATIVE: CASE EVENT DATE: 20241031
